FAERS Safety Report 12566220 (Version 1)
Quarter: 2016Q3

REPORT INFORMATION
  Report Type: Spontaneous
  Country: JP (occurrence: JP)
  Receive Date: 20160718
  Receipt Date: 20160718
  Transmission Date: 20161109
  Serious: Yes (Hospitalization)
  Sender: FDA-Public Use
  Company Number: JP-SA-2016SA128595

PATIENT

DRUGS (2)
  1. MYSLEE [Suspect]
     Active Substance: ZOLPIDEM TARTRATE
     Dosage: BEFORE BEDTIME
     Route: 048
  2. SELENICA-R [Concomitant]
     Active Substance: VALPROATE SODIUM
     Dosage: AFTER BREAKFAST
     Route: 048

REACTIONS (3)
  - Somnolence [Unknown]
  - Epilepsy [Unknown]
  - Middle insomnia [Unknown]
